FAERS Safety Report 8305550-3 (Version None)
Quarter: 2012Q2

REPORT INFORMATION
  Report Type: 
  Country: None (occurrence: None)
  Receive Date: 20120423
  Receipt Date: 20120417
  Transmission Date: 20120825
  Serious: Yes (Other)
  Sender: FDA-Public Use
  Company Number: US-MERCK-1203USA00196

PATIENT
  Age: 46 Year
  Sex: Female

DRUGS (2)
  1. ISENTRESS [Suspect]
     Route: 048
  2. VIREAD [Suspect]
     Route: 065

REACTIONS (3)
  - HYPERSENSITIVITY [None]
  - RASH [None]
  - CEREBROVASCULAR ACCIDENT [None]
